FAERS Safety Report 17233456 (Version 1)
Quarter: 2020Q1

REPORT INFORMATION
  Report Type: Spontaneous
  Country: DE (occurrence: DE)
  Receive Date: 20200104
  Receipt Date: 20200104
  Transmission Date: 20200409
  Serious: Yes (Hospitalization)
  Sender: FDA-Public Use
  Company Number: DE-TEVA-2019-DE-1161190

PATIENT
  Age: 66 Year
  Sex: Female

DRUGS (4)
  1. VOCADO [Suspect]
     Active Substance: AMLODIPINE BESYLATE\OLMESARTAN MEDOXOMIL
     Dosage: NK
  2. NEBIVOLOL. [Suspect]
     Active Substance: NEBIVOLOL
     Dosage: NK
  3. FIASP [Concomitant]
     Active Substance: INSULIN ASPART
     Dosage: NK, INSULIN PUMP
  4. ATORVASTATIN [Suspect]
     Active Substance: ATORVASTATIN
     Dosage: NK

REACTIONS (1)
  - Syncope [Unknown]

NARRATIVE: CASE EVENT DATE: 20191006
